FAERS Safety Report 12457434 (Version 2)
Quarter: 2016Q4

REPORT INFORMATION
  Report Type: Spontaneous
  Country: ES (occurrence: ES)
  Receive Date: 20160610
  Receipt Date: 20161230
  Transmission Date: 20170207
  Serious: Yes (Other)
  Sender: FDA-Public Use
  Company Number: ES-SA-2016SA107402

PATIENT
  Age: 35 Year
  Sex: Female

DRUGS (1)
  1. ENOXAPARIN SODIUM. [Suspect]
     Active Substance: ENOXAPARIN SODIUM
     Indication: IMMOBILISATION PROLONGED
     Route: 065

REACTIONS (6)
  - Injection site erythema [Recovered/Resolved]
  - Injection site oedema [Recovered/Resolved]
  - Type IV hypersensitivity reaction [Recovered/Resolved]
  - Urticaria [Recovered/Resolved]
  - Skin plaque [Recovered/Resolved]
  - Rash pruritic [Recovered/Resolved]
